FAERS Safety Report 5655215-1 (Version None)
Quarter: 2008Q1

REPORT INFORMATION
  Report Type: 
  Country: None (occurrence: None)
  Receive Date: 20080307
  Receipt Date: 20080304
  Transmission Date: 20080703
  Serious: Yes (Hospitalization, Other)
  Sender: FDA-Public Use
  Company Number: US-WYE-H02927708

PATIENT
  Sex: Male

DRUGS (15)
  1. RAPAMUNE [Suspect]
     Indication: PROPHYLAXIS AGAINST TRANSPLANT REJECTION
     Route: 048
     Dates: start: 20070326, end: 20080105
  2. RAPAMUNE [Suspect]
     Route: 048
     Dates: start: 20080106
  3. MYCOPHENOLATE MOFETIL [Suspect]
     Indication: PROPHYLAXIS AGAINST TRANSPLANT REJECTION
     Route: 048
     Dates: start: 20070326
  4. PROTONIX [Concomitant]
     Dosage: DOSE UNKNOWN
     Route: 065
     Dates: start: 20070515
  5. NORVASC [Concomitant]
     Dosage: DOSE UNKNOWN
     Route: 065
     Dates: start: 20070515
  6. DIOVAN [Concomitant]
     Dosage: DOSE UNKNOWN
     Route: 065
     Dates: start: 20070515
  7. ASCORBIC ACID/ERGOCALCIFEROL/FOLIC ACID/NICOTINAMIDE/PANTHENOL/RETINOL [Concomitant]
     Dosage: DOSE UNKNOWN
     Route: 065
     Dates: start: 20070515
  8. FOLIC ACID [Concomitant]
     Dosage: DOSE UNKNOWN
     Route: 065
     Dates: start: 20070401
  9. MAGNESIUM [Concomitant]
     Dosage: DOSE UNKNOWN
     Route: 065
     Dates: start: 20070515
  10. CALCIUM CARBONATE [Concomitant]
     Dosage: DOSE UNKNOWN
     Route: 065
     Dates: start: 20070515
  11. ASPIRIN [Concomitant]
     Dosage: DOSE UNKNOWN
     Route: 065
     Dates: start: 20070401
  12. SELENIUM [Concomitant]
     Dosage: DOSE UNKNOWN
     Route: 065
     Dates: start: 20070515
  13. NEXAVAR [Concomitant]
     Dosage: DOSE UNKNOWN
     Route: 065
     Dates: start: 20071220
  14. BACTRIM [Concomitant]
     Dosage: DOSE UNKNOWN
     Route: 065
     Dates: start: 20070401
  15. URSODIOL [Concomitant]
     Dosage: DOSE UNKNOWN
     Route: 065
     Dates: start: 20070515

REACTIONS (3)
  - HEPATIC CANCER METASTATIC [None]
  - PNEUMONIA [None]
  - SINUSITIS [None]
